FAERS Safety Report 19625956 (Version 1)
Quarter: 2021Q3

REPORT INFORMATION
  Report Type: Spontaneous
  Country: US (occurrence: US)
  Receive Date: 20210728
  Receipt Date: 20210728
  Transmission Date: 20211014
  Serious: No
  Sender: FDA-Public Use
  Company Number: None

PATIENT
  Sex: Female

DRUGS (23)
  1. AMBRISENTAN [Suspect]
     Active Substance: AMBRISENTAN
     Indication: PULMONARY ARTERIAL HYPERTENSION
     Route: 048
  2. LEVOTHYROXINE SODIUM. [Concomitant]
     Active Substance: LEVOTHYROXINE SODIUM
  3. VALIUM [Concomitant]
     Active Substance: DIAZEPAM
  4. ALBUTEROL SULFATE    STOOL SOFTENER [Concomitant]
  5. HYDROXYUREA. [Concomitant]
     Active Substance: HYDROXYUREA
  6. BENTYL [Concomitant]
     Active Substance: DICYCLOMINE HYDROCHLORIDE
  7. VIIBRYD [Concomitant]
     Active Substance: VILAZODONE HYDROCHLORIDE
  8. DEXILANT [Concomitant]
     Active Substance: DEXLANSOPRAZOLE
  9. LIPITOR [Concomitant]
     Active Substance: ATORVASTATIN CALCIUM
  10. BUSPIRONE HYDROCHLORIDE. [Concomitant]
     Active Substance: BUSPIRONE HYDROCHLORIDE
  11. TORSEMIDE. [Concomitant]
     Active Substance: TORSEMIDE
  12. ADCIRCA [Concomitant]
     Active Substance: TADALAFIL
  13. VISTARIL [Concomitant]
     Active Substance: HYDROXYZINE PAMOATE
  14. POTASSIUM CHLORIDE. [Concomitant]
     Active Substance: POTASSIUM CHLORIDE
  15. GABAPENTIN. [Concomitant]
     Active Substance: GABAPENTIN
  16. ASMANEX HFA [Concomitant]
     Active Substance: MOMETASONE FUROATE
  17. VITAMIN D [Concomitant]
     Active Substance: VITAMIN D NOS
  18. BUTALBITAL AND ACETAMINOPHEN [Concomitant]
     Active Substance: ACETAMINOPHEN\BUTALBITAL
  19. HYDROCODONE BITARTRATE/AC [Concomitant]
  20. UPTRAVI [Concomitant]
     Active Substance: SELEXIPAG
  21. WARFARIN SODIUM. [Concomitant]
     Active Substance: WARFARIN SODIUM
  22. REMERON [Concomitant]
     Active Substance: MIRTAZAPINE
  23. REXULTI [Concomitant]
     Active Substance: BREXPIPRAZOLE

REACTIONS (1)
  - Vitamin D deficiency [None]
